FAERS Safety Report 6091748-4 (Version None)
Quarter: 2009Q1

REPORT INFORMATION
  Report Type: 
  Country: None (occurrence: None)
  Receive Date: 20090225
  Receipt Date: 20080515
  Transmission Date: 20090719
  Serious: No
  Sender: FDA-Public Use
  Company Number: A0728117A

PATIENT
  Age: 73 Year
  Sex: Female

DRUGS (11)
  1. VALTREX [Suspect]
     Dosage: 1000MG THREE TIMES PER DAY
     Route: 048
     Dates: start: 20080512, end: 20080514
  2. METFORMIN [Concomitant]
  3. LISINOPRIL [Concomitant]
  4. LEXAPRO [Concomitant]
  5. PANTOPRAZOLE [Concomitant]
  6. SIMVASTATIN [Concomitant]
  7. PRIMIDONE [Concomitant]
  8. ATENOLOL [Concomitant]
  9. HYDROCODONE [Concomitant]
  10. LANTUS [Concomitant]
  11. PREDNISONE [Concomitant]

REACTIONS (3)
  - HAEMORRHAGE SUBCUTANEOUS [None]
  - NAUSEA [None]
  - PRURITUS [None]
